FAERS Safety Report 17270067 (Version 1)
Quarter: 2020Q1

REPORT INFORMATION
  Report Type: Spontaneous
  Country: US (occurrence: US)
  Receive Date: 20200114
  Receipt Date: 20200114
  Transmission Date: 20200409
  Serious: No
  Sender: FDA-Public Use
  Company Number: US-PARI RESPIRATORY EQUIPMENT, INC.-2019PAR00032

PATIENT
  Sex: Female
  Weight: 71.66 kg

DRUGS (4)
  1. KITABIS PAK [Suspect]
     Active Substance: TOBRAMYCIN
     Indication: CHRONIC OBSTRUCTIVE PULMONARY DISEASE
     Dosage: 300 MG, 2X/DAY FOR 28 DAYS ON AND 28 DAYS OFF
     Dates: start: 201901
  2. KITABIS PAK [Suspect]
     Active Substance: TOBRAMYCIN
     Indication: PSEUDOMONAS INFECTION
  3. KITABIS PAK [Suspect]
     Active Substance: TOBRAMYCIN
     Indication: BRONCHIECTASIS
  4. KITABIS PAK [Suspect]
     Active Substance: TOBRAMYCIN
     Indication: ASTHMA

REACTIONS (7)
  - Pulmonary congestion [Recovered/Resolved]
  - Off label use [Not Recovered/Not Resolved]
  - Sinusitis [Recovered/Resolved]
  - Urinary tract infection [Unknown]
  - Discomfort [Not Recovered/Not Resolved]
  - Ear infection [Recovered/Resolved]
  - Fungal infection [Unknown]

NARRATIVE: CASE EVENT DATE: 2019
